FAERS Safety Report 9774544 (Version 1)
Quarter: 2013Q4

REPORT INFORMATION
  Report Type: Spontaneous
  Country: IN (occurrence: IN)
  Receive Date: 20131220
  Receipt Date: 20131220
  Transmission Date: 20140711
  Serious: Yes (Hospitalization)
  Sender: FDA-Public Use
  Company Number: PHHY2013IN143308

PATIENT
  Age: 11 Year
  Sex: Male

DRUGS (3)
  1. CICLOSPORIN [Suspect]
     Indication: PROTEINURIA
     Dosage: 3 MG, UNK
  2. PREDNISOLONE [Suspect]
     Indication: PROTEINURIA
     Dosage: 2 MG/KG, UNK
  3. ENALAPRIL [Suspect]
     Indication: PROTEINURIA

REACTIONS (12)
  - Nephropathy toxic [Unknown]
  - Proteinuria [Recovering/Resolving]
  - Hypoalbuminaemia [Unknown]
  - Oliguria [Unknown]
  - Toxicity to various agents [Recovering/Resolving]
  - Oedema [Recovering/Resolving]
  - Hypertension [Unknown]
  - Blood creatinine decreased [Unknown]
  - Blood urea decreased [Unknown]
  - Weight decreased [Unknown]
  - Drug resistance [Unknown]
  - Drug ineffective [Unknown]
